FAERS Safety Report 25619037 (Version 1)
Quarter: 2025Q3

REPORT INFORMATION
  Report Type: Spontaneous
  Country: CA (occurrence: CA)
  Receive Date: 20250729
  Receipt Date: 20250729
  Transmission Date: 20251020
  Serious: Yes (Death, Life-Threatening, Hospitalization, Disabling, Congenital Anomaly, Other)
  Sender: SANDOZ
  Company Number: CA-002147023-NVSC2025CA117671

PATIENT
  Age: 43 Year
  Sex: Female
  Weight: 70 kg

DRUGS (17)
  1. ALENDRONIC ACID [Suspect]
     Active Substance: ALENDRONIC ACID
     Indication: Rheumatoid arthritis
     Route: 016
  2. AIMOVIG [Suspect]
     Active Substance: ERENUMAB-AOOE
     Indication: Migraine
     Route: 059
  3. COSENTYX [Suspect]
     Active Substance: SECUKINUMAB
     Indication: Rheumatoid arthritis
     Route: 048
  4. COSENTYX [Suspect]
     Active Substance: SECUKINUMAB
     Indication: Psoriatic arthropathy
  5. DICLOFENAC [Suspect]
     Active Substance: DICLOFENAC
     Indication: Product used for unknown indication
     Route: 065
  6. ERELZI [Suspect]
     Active Substance: ETANERCEPT-SZZS
     Indication: Rheumatoid arthritis
     Route: 059
  7. HYRIMOZ [Suspect]
     Active Substance: ADALIMUMAB-ADAZ
     Indication: Rheumatoid arthritis
     Route: 048
  8. HYRIMOZ [Suspect]
     Active Substance: ADALIMUMAB-ADAZ
     Indication: Psoriatic arthropathy
  9. OXYCODONE [Suspect]
     Active Substance: OXYCODONE
     Dosage: 6 MG, QD
     Route: 065
  10. OXYCODONE [Suspect]
     Active Substance: OXYCODONE
     Indication: Product used for unknown indication
     Route: 041
  11. PREGABALIN [Suspect]
     Active Substance: PREGABALIN
     Indication: Rheumatoid arthritis
     Route: 065
  12. RITUXIMAB [Suspect]
     Active Substance: RITUXIMAB
     Indication: Rheumatoid arthritis
     Route: 042
  13. LEFLUNOMIDE [Suspect]
     Active Substance: LEFLUNOMIDE
     Indication: Rheumatoid arthritis
     Dosage: 20 MG, QD
     Route: 065
  14. MYCOPHENOLATE MOFETIL [Suspect]
     Active Substance: MYCOPHENOLATE MOFETIL
     Indication: Rheumatoid arthritis
     Route: 065
  15. QUETIAPINE FUMARATE [Suspect]
     Active Substance: QUETIAPINE FUMARATE
     Indication: Product used for unknown indication
     Route: 065
  16. TRIAMCINOLONE [Suspect]
     Active Substance: TRIAMCINOLONE
     Indication: Rheumatoid arthritis
     Route: 048
  17. VOLTAREN [Suspect]
     Active Substance: DICLOFENAC SODIUM
     Indication: Product used for unknown indication
     Route: 065

REACTIONS (29)
  - Blepharospasm [Fatal]
  - Hypoaesthesia [Fatal]
  - Glossodynia [Fatal]
  - Gait disturbance [Fatal]
  - Fibromyalgia [Fatal]
  - Depression [Fatal]
  - Condition aggravated [Fatal]
  - Blister [Fatal]
  - Arthropathy [Fatal]
  - Anti-cyclic citrullinated peptide antibody positive [Fatal]
  - Alopecia [Fatal]
  - Infection [Fatal]
  - Incorrect route of product administration [Fatal]
  - Impaired healing [Fatal]
  - Ill-defined disorder [Fatal]
  - Hypertension [Fatal]
  - Hypersensitivity [Fatal]
  - Hypercholesterolaemia [Fatal]
  - Hepatic enzyme increased [Fatal]
  - Hepatic cirrhosis [Fatal]
  - Helicobacter infection [Fatal]
  - Headache [Fatal]
  - Hand deformity [Fatal]
  - Grip strength decreased [Fatal]
  - General physical health deterioration [Fatal]
  - Gait inability [Fatal]
  - Foot deformity [Fatal]
  - Folliculitis [Fatal]
  - Fatigue [Fatal]
